FAERS Safety Report 15339481 (Version 1)
Quarter: 2018Q3

REPORT INFORMATION
  Report Type: Spontaneous
  Country: CA (occurrence: CA)
  Receive Date: 20180831
  Receipt Date: 20180831
  Transmission Date: 20181010
  Serious: Yes (Other)
  Sender: FDA-Public Use
  Company Number: CA-BAUSCH-BL-2018-023834

PATIENT
  Sex: Male
  Weight: 101.7 kg

DRUGS (2)
  1. CHLORTHALIDONE. [Concomitant]
     Active Substance: CHLORTHALIDONE
     Indication: PRODUCT USED FOR UNKNOWN INDICATION
     Route: 048
  2. TIAZAC XC [Suspect]
     Active Substance: DILTIAZEM HYDROCHLORIDE
     Indication: BLOOD PRESSURE ABNORMAL
     Dosage: TOTAL 300 MG (1 TABLET OF 120 MG AND 1 TABLET OF 180 MG ONCE DAILY). STARTED 8?9 MONTH AGO
     Route: 048
     Dates: start: 2017

REACTIONS (6)
  - Asthenia [Recovered/Resolved]
  - Skin disorder [Recovered/Resolved]
  - Therapeutic response unexpected [Unknown]
  - Flushing [Recovered/Resolved]
  - Drug dose omission [Recovered/Resolved]
  - Cataract operation [Recovered/Resolved]
